FAERS Safety Report 8024428-6 (Version None)
Quarter: 2012Q1

REPORT INFORMATION
  Report Type: 
  Country: None (occurrence: None)
  Receive Date: 20120105
  Receipt Date: 20111227
  Transmission Date: 20120608
  Serious: Yes (Other)
  Sender: FDA-Public Use
  Company Number: FR-NOVOPROD-342153

PATIENT

DRUGS (7)
  1. VICTOZA [Suspect]
     Indication: DIABETES MELLITUS
     Dosage: 0.6 MG, QD
     Route: 058
     Dates: start: 20111017, end: 20111020
  2. PLAVIX [Concomitant]
  3. BIGUANIDE [Concomitant]
     Indication: DIABETES MELLITUS
  4. SIMVASTATIN [Concomitant]
  5. VALSARTAN  AND HYDROCHLOROTHIAZIDE [Concomitant]
  6. SULFAMIDE [Concomitant]
     Indication: DIABETES MELLITUS
  7. OMEPRAZOLE [Concomitant]

REACTIONS (3)
  - NAUSEA [None]
  - WEIGHT DECREASED [None]
  - VOMITING [None]
